FAERS Safety Report 9401277 (Version 20)
Quarter: 2015Q3

REPORT INFORMATION
  Report Type: Report from Study
  Country: DE (occurrence: DE)
  Receive Date: 20130715
  Receipt Date: 20150703
  Transmission Date: 20151125
  Serious: Yes (Hospitalization)
  Sender: FDA-Public Use
  Company Number: DE-ROCHE-1244321

PATIENT
  Age: 56 Year
  Sex: Female

DRUGS (26)
  1. IBUPROFEN. [Concomitant]
     Active Substance: IBUPROFEN
     Route: 065
  2. CLEXANE [Concomitant]
     Active Substance: ENOXAPARIN SODIUM
     Route: 065
     Dates: start: 20140220, end: 20140313
  3. PANTOZOL [Concomitant]
     Active Substance: PANTOPRAZOLE SODIUM
     Route: 065
     Dates: end: 20130522
  4. CLEXANE [Concomitant]
     Active Substance: ENOXAPARIN SODIUM
     Indication: THROMBOSIS
     Route: 058
     Dates: end: 20130423
  5. CLEXANE [Concomitant]
     Active Substance: ENOXAPARIN SODIUM
     Route: 065
     Dates: start: 20130405, end: 20130407
  6. LEVOTYROXIN [Concomitant]
     Route: 065
     Dates: start: 19970501
  7. OBSTINOL [Concomitant]
  8. OCTENISEPT [Concomitant]
     Route: 065
     Dates: start: 20130507, end: 20130531
  9. PERTUZUMAB [Suspect]
     Active Substance: PERTUZUMAB
     Dosage: MAINTENANCE DOSE, LAST DOSE PRIOR TO REDUCED CONDITION ON 14/JUN/2013. LAST DOSE PRIOR TO SAE: 12/JU
     Route: 042
     Dates: start: 20130430
  10. PERTUZUMAB [Suspect]
     Active Substance: PERTUZUMAB
     Dosage: DATE OF LAST DOSE PRIOR TO DIARRHOEA: 05/SEP/2013
     Route: 042
     Dates: start: 20130905
  11. TRASTUZUMAB [Suspect]
     Active Substance: TRASTUZUMAB
     Indication: HER-2 POSITIVE BREAST CANCER
     Dosage: LOADING DOSE AS PER PROTOCOL.
     Route: 042
     Dates: start: 20130402, end: 20130402
  12. PACLITAXEL. [Suspect]
     Active Substance: PACLITAXEL
     Dosage: DATE OF LAST DOSE PRIOR TO DIARRHOEA: 05/SEP/2013
     Route: 042
     Dates: start: 20130905
  13. LAXOBERAL [Concomitant]
     Active Substance: SODIUM PICOSULFATE
     Dosage: 10 DROPS
     Route: 065
  14. DUROGESIC [Concomitant]
     Active Substance: FENTANYL
     Indication: METASTATIC PAIN
     Dosage: TOTAL DAILY DOSE REPORTED AS: 125/3MG.
     Route: 065
  15. CLEXANE [Concomitant]
     Active Substance: ENOXAPARIN SODIUM
     Route: 065
     Dates: start: 20130712, end: 20130723
  16. LYRICA [Concomitant]
     Active Substance: PREGABALIN
     Indication: METASTASIS
     Route: 065
     Dates: start: 20130801
  17. PERTUZUMAB [Suspect]
     Active Substance: PERTUZUMAB
     Indication: HER-2 POSITIVE BREAST CANCER
     Dosage: LOADING DOSE AS PER PROTOCOL.
     Route: 042
     Dates: start: 20130402, end: 20130402
  18. TRASTUZUMAB [Suspect]
     Active Substance: TRASTUZUMAB
     Dosage: MAINTENANCE DOSE. LAST DOSE PRIOR TO SAE ON 14/JUN/2013.
     Route: 042
  19. TRASTUZUMAB [Suspect]
     Active Substance: TRASTUZUMAB
     Dosage: LAST DOSE PRIOR TO SAE: 30/APR/2013
     Route: 042
  20. PACLITAXEL. [Suspect]
     Active Substance: PACLITAXEL
     Indication: HER-2 POSITIVE BREAST CANCER
     Dosage: LAST DOSE PRIOR TO REDUCED CONDITION ON 21/JUN/2013. LAST DOSE PRIOR TO SAE 12/JUL/2013. TEMPORARILY
     Route: 042
     Dates: start: 20130402, end: 20130719
  21. TRASTUZUMAB [Suspect]
     Active Substance: TRASTUZUMAB
     Dosage: MAINTENANCE DOSE, LAST DOSE PRIOR TO SAE: 12/JUL/2013
     Route: 042
     Dates: start: 20130430
  22. TRASTUZUMAB [Suspect]
     Active Substance: TRASTUZUMAB
     Dosage: DATE OF LAST DOSE PRIOR TO DIARRHOEA: 05/SEP/2013
     Route: 042
     Dates: start: 20130905
  23. SAROTEN [Concomitant]
     Active Substance: AMITRIPTYLINE
     Route: 065
  24. IBUPROFEN. [Concomitant]
     Active Substance: IBUPROFEN
     Route: 065
     Dates: start: 20130628
  25. ULCOGANT [Concomitant]
     Active Substance: SUCRALFATE
     Indication: PROPHYLAXIS
     Dosage: 3 BAGS
     Route: 065
  26. LASIX [Concomitant]
     Active Substance: FUROSEMIDE
     Route: 065
     Dates: start: 20130801

REACTIONS (5)
  - General physical health deterioration [Recovered/Resolved]
  - Diarrhoea [Recovered/Resolved]
  - General physical health deterioration [Recovered/Resolved with Sequelae]
  - Diarrhoea [Recovered/Resolved]
  - Hypokalaemia [Recovered/Resolved]

NARRATIVE: CASE EVENT DATE: 20130513
